FAERS Safety Report 6017779-8 (Version None)
Quarter: 2008Q4

REPORT INFORMATION
  Report Type: 
  Country: None (occurrence: None)
  Receive Date: 20081223
  Receipt Date: 20081215
  Transmission Date: 20090506
  Serious: Yes (Other)
  Sender: FDA-Public Use
  Company Number: US-JNJFOC-20081005558

PATIENT
  Sex: Female
  Weight: 97.52 kg

DRUGS (4)
  1. REMICADE [Suspect]
     Route: 042
  2. REMICADE [Suspect]
     Indication: COLITIS ULCERATIVE
     Dosage: APPROXIMATELY 5 DOSES
     Route: 042
  3. EFFEXOR [Concomitant]
     Indication: POSTPARTUM DEPRESSION
  4. SULFASALAZINE [Concomitant]

REACTIONS (3)
  - ABDOMINAL PAIN LOWER [None]
  - SPLEEN DISORDER [None]
  - VENOUS THROMBOSIS [None]
